FAERS Safety Report 7000422-9 (Version None)
Quarter: 2010Q3

REPORT INFORMATION
  Report Type: 
  Country: None (occurrence: None)
  Receive Date: 20100920
  Receipt Date: 20091005
  Transmission Date: 20110219
  Serious: No
  Sender: FDA-Public Use
  Company Number: US-ASTRAZENECA-2009SE18348

PATIENT
  Age: 63 Year
  Sex: Female

DRUGS (4)
  1. SEROQUEL [Suspect]
     Indication: SLEEP DISORDER
     Route: 048
     Dates: start: 20090220
  2. SEROQUEL [Suspect]
     Indication: ANXIETY
     Route: 048
     Dates: start: 20090220
  3. SEROQUEL [Suspect]
     Route: 048
     Dates: start: 20090220
  4. SEROQUEL [Suspect]
     Route: 048
     Dates: start: 20090220

REACTIONS (2)
  - MEMORY IMPAIRMENT [None]
  - WEIGHT INCREASED [None]
